FAERS Safety Report 6244983-6 (Version None)
Quarter: 2009Q2

REPORT INFORMATION
  Report Type: 
  Country: None (occurrence: None)
  Receive Date: 20090623
  Receipt Date: 20090623
  Transmission Date: 20091009
  Serious: Yes (Other)
  Sender: FDA-Public Use
  Company Number: None

PATIENT
  Age: 56 Year
  Sex: Female
  Weight: 72.5755 kg

DRUGS (1)
  1. AMBIEN [Suspect]
     Indication: INSOMNIA
     Dosage: 5-10 MGS. QHS PO
     Route: 048

REACTIONS (7)
  - BACK PAIN [None]
  - BINGE EATING [None]
  - CONTUSION [None]
  - FALL [None]
  - HUNGER [None]
  - MEMORY IMPAIRMENT [None]
  - SOMNAMBULISM [None]
